FAERS Safety Report 5089434-2 (Version None)
Quarter: 2006Q3

REPORT INFORMATION
  Report Type: 
  Country: None (occurrence: None)
  Receive Date: 20060822
  Receipt Date: 20060809
  Transmission Date: 20061208
  Serious: Yes (Death)
  Sender: FDA-Public Use
  Company Number: ENTC2006-0224

PATIENT
  Age: 68 Year
  Sex: Female

DRUGS (5)
  1. STALEVO 100 [Suspect]
     Indication: PARKINSON'S DISEASE
     Dosage: 50 MG X 3, ORAL
     Route: 048
     Dates: start: 20060330, end: 20060502
  2. LEUKERAN [Concomitant]
  3. LYRICA [Concomitant]
  4. AMITRIPTYLIN [Concomitant]
  5. SIFROL [Concomitant]

REACTIONS (5)
  - AGRANULOCYTOSIS [None]
  - ASTHENIA [None]
  - DIZZINESS [None]
  - NAUSEA [None]
  - PANCYTOPENIA [None]
